FAERS Safety Report 25552278 (Version 1)
Quarter: 2025Q3

REPORT INFORMATION
  Report Type: Spontaneous
  Country: CN (occurrence: CN)
  Receive Date: 20250715
  Receipt Date: 20250715
  Transmission Date: 20251020
  Serious: Yes (Other)
  Sender: BEIGENE
  Company Number: CN-BEIGENE-BGN-2025-011082

PATIENT
  Age: 81 Year
  Weight: 60 kg

DRUGS (8)
  1. TISLELIZUMAB [Suspect]
     Active Substance: TISLELIZUMAB
     Indication: Nasopharyngeal cancer
  2. TISLELIZUMAB [Suspect]
     Active Substance: TISLELIZUMAB
     Route: 041
  3. TISLELIZUMAB [Suspect]
     Active Substance: TISLELIZUMAB
     Route: 041
  4. TISLELIZUMAB [Suspect]
     Active Substance: TISLELIZUMAB
  5. CARBOPLATIN [Concomitant]
     Active Substance: CARBOPLATIN
     Indication: Nasopharyngeal cancer
     Route: 041
  6. CARBOPLATIN [Concomitant]
     Active Substance: CARBOPLATIN
  7. PACLITAXEL [Concomitant]
     Active Substance: PACLITAXEL
     Indication: Nasopharyngeal cancer
     Route: 041
  8. PACLITAXEL [Concomitant]
     Active Substance: PACLITAXEL

REACTIONS (2)
  - Agranulocytosis [Recovering/Resolving]
  - Platelet count decreased [Recovering/Resolving]
